FAERS Safety Report 17127189 (Version 2)
Quarter: 2022Q1

REPORT INFORMATION
  Report Type: Spontaneous
  Country: CH (occurrence: CH)
  Receive Date: 20191209
  Receipt Date: 20220203
  Transmission Date: 20220423
  Serious: Yes (Other)
  Sender: FDA-Public Use
  Company Number: CH-SM-2019-18390

PATIENT
  Age: 48 Year
  Sex: Female

DRUGS (23)
  1. TRISENOX [Suspect]
     Active Substance: ARSENIC TRIOXIDE
     Route: 065
     Dates: start: 20191019, end: 20191019
  2. IDARUBICIN [Suspect]
     Active Substance: IDARUBICIN
     Dosage: IN TOTAL
     Route: 065
     Dates: start: 20191015, end: 20191015
  3. IDARUBICIN [Suspect]
     Active Substance: IDARUBICIN
     Dosage: IN TOTAL
     Route: 065
     Dates: start: 20191017, end: 20191017
  4. TRETINOIN [Suspect]
     Active Substance: TRETINOIN
     Route: 065
     Dates: start: 20191015, end: 20191019
  5. ENOXAPARIN SODIUM [Concomitant]
     Active Substance: ENOXAPARIN SODIUM
  6. ASPIRIN [Concomitant]
     Active Substance: ASPIRIN
  7. FOLIC ACID [Concomitant]
     Active Substance: FOLIC ACID
  8. ATORVASTATIN [Concomitant]
     Active Substance: ATORVASTATIN
  9. ESOMEPRAZOLE [Concomitant]
     Active Substance: ESOMEPRAZOLE
  10. NYSTATIN [Concomitant]
     Active Substance: NYSTATIN
  11. VALTREX [Concomitant]
     Active Substance: VALACYCLOVIR HYDROCHLORIDE
  12. CHOLECALCIFEROL [Concomitant]
     Active Substance: CHOLECALCIFEROL
  13. CEFEPIME [Concomitant]
     Active Substance: CEFEPIME HYDROCHLORIDE
     Dosage: AS NECESSARY
  14. CETIRIZINE [Concomitant]
     Active Substance: CETIRIZINE HYDROCHLORIDE
     Dosage: AS NECESSARY
  15. CLOMETHIAZOLE [Concomitant]
     Active Substance: CLOMETHIAZOLE
     Dosage: AS NECESSARY
  16. CARBOMER [Concomitant]
     Active Substance: CARBOMER
     Dosage: AS NECESSARY
  17. Temesta [Concomitant]
     Dosage: AS NECESSARY
  18. MOVICOL [Concomitant]
     Active Substance: POLYETHYLENE GLYCOL 3350\POTASSIUM CHLORIDE\SODIUM BICARBONATE\SODIUM CHLORIDE
     Dosage: AS NECESSARY
  19. Paspertin [Concomitant]
     Dosage: AS NECESSARY
  20. ONDANSETRON [Concomitant]
     Active Substance: ONDANSETRON
     Dosage: AS NECESSARY
  21. DAFALGAN [Concomitant]
     Active Substance: ACETAMINOPHEN
     Dosage: AS NECESSARY
  22. SODIUM PICOSULFATE [Concomitant]
     Active Substance: SODIUM PICOSULFATE
     Dosage: AS NECESSARY
  23. FIG FRUIT OIL\SORBITOL [Concomitant]
     Active Substance: FIG FRUIT OIL\SORBITOL
     Dosage: AS NECESSARY

REACTIONS (1)
  - Electrocardiogram QT prolonged [Not Recovered/Not Resolved]
